FAERS Safety Report 5625738-X (Version None)
Quarter: 2008Q1

REPORT INFORMATION
  Report Type: 
  Country: None (occurrence: None)
  Receive Date: 20080207
  Receipt Date: 20080207
  Transmission Date: 20080703
  Serious: No
  Sender: FDA-Public Use
  Company Number: None

PATIENT
  Sex: Female
  Weight: 58.9676 kg

DRUGS (1)
  1. AVELOX [Suspect]
     Indication: CYSTITIS
     Dosage: 400 MG DAILY PO
     Route: 048
     Dates: start: 20060801, end: 20060810

REACTIONS (38)
  - ABASIA [None]
  - ABDOMINAL PAIN [None]
  - ANAPHYLACTIC REACTION [None]
  - ANXIETY [None]
  - ARRHYTHMIA [None]
  - ASTHENIA [None]
  - BACK PAIN [None]
  - CANDIDIASIS [None]
  - CHILLS [None]
  - CONFUSIONAL STATE [None]
  - CONSTIPATION [None]
  - DEPERSONALISATION [None]
  - DEPRESSION [None]
  - DIPLOPIA [None]
  - DIZZINESS [None]
  - EYE PAIN [None]
  - FLUSHING [None]
  - FOOD ALLERGY [None]
  - HYPERSENSITIVITY [None]
  - INSOMNIA [None]
  - IRRITABILITY [None]
  - JOINT STIFFNESS [None]
  - LETHARGY [None]
  - MALAISE [None]
  - NECK PAIN [None]
  - NIGHTMARE [None]
  - PAIN IN JAW [None]
  - PALPITATIONS [None]
  - PARAESTHESIA [None]
  - PHOTOPHOBIA [None]
  - PHOTOSENSITIVITY REACTION [None]
  - PYREXIA [None]
  - SOMNOLENCE [None]
  - TINNITUS [None]
  - TREMOR [None]
  - VAGINAL CANDIDIASIS [None]
  - VISION BLURRED [None]
  - VISUAL ACUITY REDUCED [None]
